FAERS Safety Report 21484973 (Version 1)
Quarter: 2022Q4

REPORT INFORMATION
  Report Type: Spontaneous
  Country: US (occurrence: None)
  Receive Date: 20221019
  Receipt Date: 20221019
  Transmission Date: 20230113
  Serious: Yes (unspecified)
  Sender: FDA-Public Use
  Company Number: None

PATIENT
  Age: 49 Year
  Sex: Female
  Weight: 56.25 kg

DRUGS (6)
  1. BUPRENORPHINE SUBLINGUAL [Suspect]
     Active Substance: BUPRENORPHINE HYDROCHLORIDE
     Dosage: OTHER QUANTITY : 1 FILM/SUBLINGUAL;?
     Route: 060
  2. WELLBUTRIN [Concomitant]
     Active Substance: BUPROPION HYDROCHLORIDE
  3. ZOLOFT [Concomitant]
     Active Substance: SERTRALINE HYDROCHLORIDE
  4. BUPRENORPHINE [Concomitant]
     Active Substance: BUPRENORPHINE
  5. EXCEDRIN [Concomitant]
     Active Substance: ACETAMINOPHEN\ASPIRIN\CAFFEINE
  6. Centrum women^s multivitamin [Concomitant]

REACTIONS (5)
  - Tooth fracture [None]
  - Dental caries [None]
  - Oral pain [None]
  - Pain in jaw [None]
  - Dental caries [None]

NARRATIVE: CASE EVENT DATE: 20220927
